FAERS Safety Report 6300621-5 (Version None)
Quarter: 2009Q3

REPORT INFORMATION
  Report Type: 
  Country: None (occurrence: None)
  Receive Date: 20090806
  Receipt Date: 20090713
  Transmission Date: 20100115
  Serious: No
  Sender: FDA-Public Use
  Company Number: US-ABBOTT-09P-163-0583625-00

PATIENT
  Sex: Female

DRUGS (7)
  1. DEPAKOTE ER [Suspect]
     Indication: HEADACHE
     Dates: start: 19990101, end: 20030101
  2. DEPAKOTE ER [Suspect]
     Dates: start: 20030101
  3. PROLIXIN [Suspect]
     Indication: ILL-DEFINED DISORDER
     Dosage: 1 IN 2 WEEK INJ. IN PHYSICIAN OFFICE
     Dates: start: 19870101, end: 19900101
  4. PROLIXIN [Suspect]
     Dosage: UNKNOWN, GETS SHOT IN PHYSICIANS OFFICE.
     Dates: start: 19900101, end: 19990101
  5. PROLIXIN [Suspect]
     Dosage: DOESN'T KNOW
     Dates: start: 20000101
  6. ZYPREXA [Concomitant]
     Indication: MENTAL DISORDER
     Dosage: NIGHTLY
     Dates: start: 19990101
  7. TUSSIN CF [Concomitant]
     Indication: HYPERSENSITIVITY

REACTIONS (3)
  - ABDOMINAL DISCOMFORT [None]
  - CONSTIPATION [None]
  - DYSURIA [None]
